FAERS Safety Report 5313707-9 (Version None)
Quarter: 2007Q2

REPORT INFORMATION
  Report Type: 
  Country: None (occurrence: None)
  Receive Date: 20070425
  Receipt Date: 20070417
  Transmission Date: 20071010
  Serious: Yes (Life-Threatening, Hospitalization)
  Sender: FDA-Public Use
  Company Number: 2007SP007297

PATIENT
  Age: 55 Year
  Sex: Male
  Weight: 61 kg

DRUGS (1)
  1. TEMODAL [Suspect]
     Indication: GLIOBLASTOMA MULTIFORME
     Dosage: 120 MG;QD;PO
     Route: 048
     Dates: start: 20070124, end: 20070306

REACTIONS (6)
  - ACUTE RESPIRATORY DISTRESS SYNDROME [None]
  - DISSEMINATED INTRAVASCULAR COAGULATION [None]
  - HERPES ZOSTER DISSEMINATED [None]
  - MULTI-ORGAN FAILURE [None]
  - SHOCK [None]
  - STAPHYLOCOCCAL SEPSIS [None]
